FAERS Safety Report 24966326 (Version 1)
Quarter: 2025Q1

REPORT INFORMATION
  Report Type: Spontaneous
  Country: BR (occurrence: BR)
  Receive Date: 20250213
  Receipt Date: 20250213
  Transmission Date: 20250409
  Serious: Yes (Other)
  Sender: TORRENT PHARMA INC.
  Company Number: BR-TORRENT-00006370

PATIENT
  Age: 32 Year
  Sex: Male

DRUGS (2)
  1. LAMOTRIGINE [Suspect]
     Active Substance: LAMOTRIGINE
     Indication: Epilepsy
     Dosage: DAILY DOSE OF 300 MG
     Route: 065
  2. CLOBAZAM [Suspect]
     Active Substance: CLOBAZAM
     Indication: Epilepsy
     Dosage: DAILY DOSE OF 20 MG
     Route: 065

REACTIONS (3)
  - Hepatic adenoma [Unknown]
  - Acute cholecystitis necrotic [Unknown]
  - Condition aggravated [Unknown]
